FAERS Safety Report 7983621-9 (Version None)
Quarter: 2011Q4

REPORT INFORMATION
  Report Type: 
  Country: None (occurrence: None)
  Receive Date: 20111215
  Receipt Date: 20111213
  Transmission Date: 20120403
  Serious: Yes (Death, Hospitalization, Other)
  Sender: FDA-Public Use
  Company Number: PHEH2004US12293

PATIENT
  Sex: Female
  Weight: 56.689 kg

DRUGS (53)
  1. PREMARIN [Concomitant]
  2. LASIX [Concomitant]
     Dosage: 20 MG, QD
     Route: 042
  3. KENALOG [Concomitant]
  4. DIFLUCAN [Concomitant]
     Dosage: 200 MG, UNK
     Route: 048
  5. PROTONIX [Concomitant]
     Dosage: 40 MG, QD
     Route: 048
  6. VANCOMYCIN [Concomitant]
  7. LORATADINE [Concomitant]
     Dosage: 10 MG, QD
     Route: 048
  8. PHENERGAN [Concomitant]
     Dosage: 25 MG, Q8H
     Route: 054
  9. AREDIA [Suspect]
     Indication: MULTIPLE MYELOMA
     Dosage: 90 MG, Q 4 WEEKS
     Dates: start: 19980918, end: 20020314
  10. CIPROFLOXACIN [Concomitant]
     Dosage: 250 MG, QD
  11. LYRICA [Concomitant]
  12. DILTIAZEM [Concomitant]
     Dosage: 30 MG, QD
  13. ZOVIRAX [Concomitant]
     Route: 061
  14. VITAMIN B NOS [Concomitant]
  15. RAMIPRIL [Concomitant]
     Dosage: 2.5 MG, BID
     Route: 048
  16. METRONIDAZOLE [Concomitant]
     Dosage: 250 MG, Q8H
     Route: 048
  17. BISACODYL [Concomitant]
     Dosage: 10 MG, UNK
  18. MELPHALAN HYDROCHLORIDE [Concomitant]
  19. RITUXAN [Concomitant]
  20. ELAVIL [Concomitant]
  21. ZOFRAN [Concomitant]
     Dosage: 4 MG, PRN
     Route: 048
  22. SEPTRA [Concomitant]
  23. ATARAX [Concomitant]
     Dosage: 50 MG, Q6H
     Route: 048
  24. VALTREX [Concomitant]
  25. CELEBREX [Concomitant]
     Dosage: 100 MG, BID
     Route: 048
  26. ADRIAMYCIN PFS [Concomitant]
  27. ATIVAN [Concomitant]
  28. PERCOCET-5 [Concomitant]
  29. THALIDOMIDE [Concomitant]
  30. PRILOSEC [Concomitant]
     Dosage: 20 MG
  31. KYTRIL [Concomitant]
     Route: 042
  32. LEUKERAN [Concomitant]
     Dosage: 14 MG, QD
  33. PROVERA [Concomitant]
  34. SOLU-MEDROL [Concomitant]
     Dosage: 60 MG, QD
     Route: 042
  35. SENNA [Concomitant]
  36. VALACYCLOVIR HYDROCHLORIDE [Concomitant]
     Dosage: 1 DF, QD
     Route: 048
  37. CARDIAZEM [Concomitant]
     Dosage: 30 MG, QD
     Route: 048
  38. MIRALAX [Concomitant]
     Dosage: 17 G, QD
     Route: 048
  39. ZOMETA [Suspect]
     Indication: MULTIPLE MYELOMA
     Dosage: 4 MG, Q 4 WEEKS
     Route: 042
     Dates: start: 20020411, end: 20040129
  40. NEUPOGEN [Concomitant]
  41. GLUTAMINE [Concomitant]
     Dosage: 15 MG, TID
  42. PROCRIT                            /00909301/ [Concomitant]
  43. PREDNISONE TAB [Concomitant]
     Dosage: 40 MG, QD
     Route: 048
  44. DILTIAZEM HCL [Concomitant]
     Dosage: 240 MG DAILY
  45. VINCRISTINE [Concomitant]
     Dosage: 2 MG, UNK
     Route: 042
  46. ZOCOR [Concomitant]
     Dosage: 20 MG, QHS
     Route: 048
  47. IMMUNE GLOBULIN NOS [Concomitant]
     Indication: IMMUNOSUPPRESSION
     Dates: start: 20041201
  48. FOSAMAX [Concomitant]
  49. OXYCODONE HCL [Concomitant]
  50. TEMAZEPAM [Concomitant]
     Dosage: 1 DF, QHS
     Route: 048
  51. GLIPIZIDE [Concomitant]
     Dosage: 5 MG, BID
     Route: 048
  52. CLINDAMYCIN HCL [Concomitant]
     Indication: OSTEONECROSIS
     Dosage: 300 MG, TID
     Route: 065
     Dates: start: 20031113, end: 20040809
  53. HYDROXYZINE [Concomitant]
     Dosage: 50 MG, Q6H

REACTIONS (100)
  - BONE DISORDER [None]
  - CORONARY ARTERY DISEASE [None]
  - CONJUNCTIVITIS [None]
  - SERUM SICKNESS [None]
  - PRURITUS [None]
  - BLOOD URINE [None]
  - FAILURE TO THRIVE [None]
  - FOOT FRACTURE [None]
  - CACHEXIA [None]
  - ABDOMINAL DISTENSION [None]
  - HYPOGAMMAGLOBULINAEMIA [None]
  - HYPERLIPIDAEMIA [None]
  - INSOMNIA [None]
  - OSTEONECROSIS OF JAW [None]
  - JAW DISORDER [None]
  - DENTAL ALVEOLAR ANOMALY [None]
  - PLEURAL EFFUSION [None]
  - BREAST CANCER IN SITU [None]
  - EPIDERMAL NECROSIS [None]
  - PARANOIA [None]
  - OSTEOARTHRITIS [None]
  - HYPOXIA [None]
  - BONE NEOPLASM MALIGNANT [None]
  - CHRONIC OBSTRUCTIVE PULMONARY DISEASE [None]
  - ARRHYTHMIA [None]
  - DYSLIPIDAEMIA [None]
  - DEEP VEIN THROMBOSIS [None]
  - GINGIVAL RECESSION [None]
  - B-CELL LYMPHOMA [None]
  - ABSCESS INTESTINAL [None]
  - DERMATITIS EXFOLIATIVE [None]
  - BETA 2 MICROGLOBULIN INCREASED [None]
  - BLOOD IMMUNOGLOBULIN G DECREASED [None]
  - ASTHENIA [None]
  - AORTIC VALVE INCOMPETENCE [None]
  - HYPERTENSION [None]
  - GASTROINTESTINAL HAEMORRHAGE [None]
  - LEUKOPENIA [None]
  - CD4 LYMPHOCYTES DECREASED [None]
  - PAIN IN EXTREMITY [None]
  - SEPSIS [None]
  - EMPYEMA [None]
  - CELLULITIS [None]
  - BONE SWELLING [None]
  - OSTEITIS [None]
  - TYPE 2 DIABETES MELLITUS [None]
  - CHOLELITHIASIS [None]
  - SKIN FRAGILITY [None]
  - DELIRIUM [None]
  - DYSPHAGIA [None]
  - DEPRESSION [None]
  - ONYCHOMYCOSIS [None]
  - BLOOD CHOLESTEROL INCREASED [None]
  - FALL [None]
  - OVARIAN CANCER [None]
  - NORMOCHROMIC NORMOCYTIC ANAEMIA [None]
  - FIBROCYSTIC BREAST DISEASE [None]
  - RASH [None]
  - DECUBITUS ULCER [None]
  - PAIN [None]
  - VAGINAL HAEMORRHAGE [None]
  - LETHARGY [None]
  - CONFUSIONAL STATE [None]
  - OEDEMA PERIPHERAL [None]
  - GAIT DISTURBANCE [None]
  - PERONEAL NERVE PALSY [None]
  - DIABETIC NEUROPATHY [None]
  - ABDOMINAL MASS [None]
  - PNEUMONIA [None]
  - PLASMA PROTEIN METABOLISM DISORDER [None]
  - IMMUNOSUPPRESSION [None]
  - SKIN LESION [None]
  - LICHENOID KERATOSIS [None]
  - BACK PAIN [None]
  - PELVIC ABSCESS [None]
  - AORTIC ARTERIOSCLEROSIS [None]
  - NEOPLASM MALIGNANT [None]
  - DIVERTICULITIS [None]
  - MASS [None]
  - ANAEMIA [None]
  - THYROID CYST [None]
  - BLOOD IMMUNOGLOBULIN A DECREASED [None]
  - PYREXIA [None]
  - WEIGHT DECREASED [None]
  - HERPES ZOSTER [None]
  - TRICUSPID VALVE INCOMPETENCE [None]
  - URINARY INCONTINENCE [None]
  - PANCYTOPENIA [None]
  - ATELECTASIS [None]
  - BREAST HYPERPLASIA [None]
  - BLOOD IMMUNOGLOBULIN M INCREASED [None]
  - HAEMATURIA [None]
  - POST HERPETIC NEURALGIA [None]
  - DYSPNOEA [None]
  - FEBRILE NEUTROPENIA [None]
  - MITRAL VALVE INCOMPETENCE [None]
  - CHEST PAIN [None]
  - VOMITING [None]
  - MENTAL STATUS CHANGES [None]
  - AGRANULOCYTOSIS [None]
